FAERS Safety Report 7694537-X (Version None)
Quarter: 2011Q3

REPORT INFORMATION
  Report Type: 
  Country: None (occurrence: None)
  Receive Date: 20110819
  Receipt Date: 20110810
  Transmission Date: 20111222
  Serious: Yes (Hospitalization, Other)
  Sender: FDA-Public Use
  Company Number: US-ASTRAZENECA-2010SE16905

PATIENT
  Age: 76 Year
  Sex: Female

DRUGS (13)
  1. ASTELIN [Concomitant]
  2. RANITIN [Concomitant]
  3. SINGULAIR [Concomitant]
  4. SYNTHROID [Concomitant]
  5. SYMBICORT [Suspect]
     Dosage: 320 MCG TWO TIMES A DAY
     Route: 055
     Dates: start: 20090401
  6. VERAPAMIL [Concomitant]
  7. NASACORT [Concomitant]
  8. HYDROCORT [Concomitant]
  9. PONARIS [Concomitant]
  10. FLONASE [Concomitant]
  11. METOPROLOL SUCCINATE [Concomitant]
  12. SPIRIVA [Concomitant]
  13. PROAIR HFA [Concomitant]

REACTIONS (2)
  - PNEUMONIA [None]
  - THROMBOSIS [None]
